FAERS Safety Report 4959095-9 (Version None)
Quarter: 2006Q1

REPORT INFORMATION
  Report Type: 
  Country: None (occurrence: None)
  Receive Date: 20060330
  Receipt Date: 20060330
  Transmission Date: 20060701
  Serious: Yes (Other)
  Sender: FDA-Public Use
  Company Number: None

PATIENT
  Age: 60 Year
  Sex: Male
  Weight: 85.2762 kg

DRUGS (2)
  1. NASACORT AQ [Suspect]
     Dosage: 4 SPRAYS  DAILY
  2. ZICAM  ZINCUM GLUCINICUM 2X  ZCAM,LLC, MATRIXX INITIATIVES [Suspect]
     Dosage: 2 SPRAYS

REACTIONS (1)
  - LOSS OF CONSCIOUSNESS [None]
